FAERS Safety Report 7474030-X (Version None)
Quarter: 2011Q2

REPORT INFORMATION
  Report Type: 
  Country: None (occurrence: None)
  Receive Date: 20110511
  Receipt Date: 20110509
  Transmission Date: 20111010
  Serious: Yes (Other)
  Sender: FDA-Public Use
  Company Number: FR-ABBOTT-11P-056-0724570-00

PATIENT
  Age: 34 Year
  Sex: Male

DRUGS (9)
  1. NORVIR [Suspect]
     Dates: start: 20110301
  2. TRUVADA [Suspect]
     Indication: HIV INFECTION
     Dates: start: 20100930, end: 20101001
  3. INTELENCE [Suspect]
     Indication: HIV INFECTION
     Dates: start: 20101101, end: 20110129
  4. INTELENCE [Suspect]
     Dates: start: 20110301
  5. REYATAZ [Suspect]
     Indication: HIV INFECTION
     Dates: start: 20110301
  6. NORVIR [Suspect]
     Indication: HIV INFECTION
     Dates: start: 20100930, end: 20101001
  7. TRUVADA [Suspect]
     Dates: start: 20101101, end: 20110129
  8. PREZISTA [Suspect]
     Indication: HIV INFECTION
     Dates: start: 20100930, end: 20101001
  9. TRUVADA [Suspect]
     Dates: start: 20110301

REACTIONS (3)
  - VERTIGO [None]
  - TOXIC SKIN ERUPTION [None]
  - HEADACHE [None]
